FAERS Safety Report 25008846 (Version 14)
Quarter: 2025Q3

REPORT INFORMATION
  Report Type: Report from Study
  Country: EU (occurrence: EU)
  Receive Date: 20250225
  Receipt Date: 20250919
  Transmission Date: 20251021
  Serious: Yes (Hospitalization, Other)
  Sender: EXELIXIS
  Company Number: EU-IPSEN Group, Research and Development-2025-01013

PATIENT

DRUGS (13)
  1. CABOZANTINIB [Suspect]
     Active Substance: CABOZANTINIB
     Indication: Renal cell carcinoma
     Dosage: 40 MG, QD
     Dates: start: 20241125, end: 20241224
  2. CABOZANTINIB [Suspect]
     Active Substance: CABOZANTINIB
     Dosage: 40 MG, QD
     Dates: start: 20250120, end: 20250218
  3. CABOZANTINIB [Suspect]
     Active Substance: CABOZANTINIB
     Dosage: 20 MG, QD
     Dates: start: 20250324, end: 20250425
  4. CABOZANTINIB [Suspect]
     Active Substance: CABOZANTINIB
     Dosage: 20 MG, EVERY OTHER DAY
     Dates: start: 20250605
  5. NIVOLUMAB [Concomitant]
     Active Substance: NIVOLUMAB
     Indication: Renal cell carcinoma
     Dates: start: 20241125
  6. NIVOLUMAB [Concomitant]
     Active Substance: NIVOLUMAB
     Dates: start: 20250120
  7. NIVOLUMAB [Concomitant]
     Active Substance: NIVOLUMAB
     Dates: start: 20250203
  8. NIVOLUMAB [Concomitant]
     Active Substance: NIVOLUMAB
     Dates: start: 20250324
  9. NIVOLUMAB [Concomitant]
     Active Substance: NIVOLUMAB
     Dates: start: 20250407
  10. NIVOLUMAB [Concomitant]
     Active Substance: NIVOLUMAB
     Dates: start: 20250425
  11. NIVOLUMAB [Concomitant]
     Active Substance: NIVOLUMAB
     Dates: start: 20250509
  12. NIVOLUMAB [Concomitant]
     Active Substance: NIVOLUMAB
     Dates: start: 20250523
  13. NIVOLUMAB [Concomitant]
     Active Substance: NIVOLUMAB
     Dates: start: 20250605

REACTIONS (30)
  - Chronic kidney disease [Recovered/Resolved]
  - Malaise [Recovered/Resolved]
  - Hyperkalaemia [Unknown]
  - Hypothyroidism [Recovered/Resolved]
  - Haemorrhoids [Recovered/Resolved]
  - Blood creatine phosphokinase increased [Recovered/Resolved]
  - Blood creatine phosphokinase increased [Recovered/Resolved]
  - Blood creatine phosphokinase increased [Recovered/Resolved]
  - Hypoalbuminaemia [Recovered/Resolved]
  - Dizziness [Recovered/Resolved]
  - Platelet count decreased [Recovered/Resolved]
  - Platelet count decreased [Recovered/Resolved]
  - Platelet count decreased [Recovered/Resolved]
  - Platelet count decreased [Unknown]
  - Nausea [Recovered/Resolved]
  - Nausea [Recovered/Resolved]
  - Stomatitis [Unknown]
  - Decreased appetite [Unknown]
  - Decreased appetite [Unknown]
  - Diarrhoea [Recovered/Resolved]
  - Proteinuria [Unknown]
  - Fatigue [Unknown]
  - Vomiting [Unknown]
  - Diarrhoea [Recovered/Resolved]
  - Constipation [Unknown]
  - White blood cell count decreased [Unknown]
  - Hypomagnesaemia [Unknown]
  - Hypertension [Unknown]
  - Prophylaxis [Unknown]
  - Pain in extremity [Unknown]

NARRATIVE: CASE EVENT DATE: 20241217
